FAERS Safety Report 26071363 (Version 1)
Quarter: 2025Q4

REPORT INFORMATION
  Report Type: Report from Study
  Country: US (occurrence: US)
  Receive Date: 20251120
  Receipt Date: 20251120
  Transmission Date: 20260118
  Serious: No
  Sender: AGIOS PHARMACEUTICALS
  Company Number: US-AGIOS-2511US04547

PATIENT
  Age: 40 Year
  Sex: Female

DRUGS (1)
  1. MITAPIVAT [Suspect]
     Active Substance: MITAPIVAT
     Indication: Product used for unknown indication
     Dosage: 20 MILLIGRAM, BID
     Route: 048
     Dates: start: 20250203

REACTIONS (1)
  - Drug ineffective [Unknown]
